FAERS Safety Report 18095441 (Version 1)
Quarter: 2020Q3

REPORT INFORMATION
  Report Type: Spontaneous
  Country: TZ (occurrence: TZ)
  Receive Date: 20200730
  Receipt Date: 20200730
  Transmission Date: 20201103
  Serious: Yes (Life-Threatening, Other)
  Sender: FDA-Public Use
  Company Number: TZ-MYLANLABS-2020M1068658

PATIENT
  Age: 31 Year
  Sex: Female

DRUGS (14)
  1. DEXAMETHASONE. [Suspect]
     Active Substance: DEXAMETHASONE
     Indication: PREMEDICATION
     Dosage: GIVEN PRIOR TO EACH PACLITAXEL CYCLE
     Route: 065
     Dates: start: 2016
  2. DOXORUBICIN [Suspect]
     Active Substance: DOXORUBICIN
     Indication: KAPOSI^S SARCOMA
     Dosage: INTENSIFIED CYCLES OF DOXORUBICIN (25?30 MG/M 2 ); ABV REGIMEN EVERY THREE WEEKS FOR A TOTAL OF ...
     Route: 065
     Dates: start: 2016
  3. CHLORPHENIRAMINE                   /00072501/ [Suspect]
     Active Substance: CHLORPHENIRAMINE
     Indication: ANAPHYLAXIS PROPHYLAXIS
  4. RANITIDINE. [Suspect]
     Active Substance: RANITIDINE
     Indication: PREMEDICATION
     Dosage: GIVEN PRIOR TO EACH PACLITAXEL CYCLE
     Route: 065
     Dates: start: 2016
  5. RANITIDINE. [Suspect]
     Active Substance: RANITIDINE
     Indication: ANAPHYLAXIS PROPHYLAXIS
  6. BLEOMYCIN [Suspect]
     Active Substance: BLEOMYCIN SULFATE
     Indication: KAPOSI^S SARCOMA
     Dosage: SINGLE CYCLE OF BLEOMYCIN 15 UNITS/M 2
     Route: 065
     Dates: start: 2016, end: 2016
  7. BLEOMYCIN [Suspect]
     Active Substance: BLEOMYCIN SULFATE
     Dosage: CYCLES OF BLEOMYCIN 15 UNITS/M2; CYCLES OF ABV REGIMEN EVERY 3 WEEKS FOR A TOTAL OF TEN CYCLES
     Route: 065
     Dates: start: 2016
  8. FLUCONAZOLE. [Suspect]
     Active Substance: FLUCONAZOLE
     Indication: ORAL CANDIDIASIS
     Route: 048
  9. EFAVIRENZ/LAMIVUDINE/TENOFOVIR [Suspect]
     Active Substance: EFAVIRENZ\LAMIVUDINE\TENOFOVIR DISOPROXIL FUMARATE
     Indication: HIV INFECTION
     Dosage: UNK
     Route: 065
     Dates: start: 2016
  10. PACLITAXEL. [Suspect]
     Active Substance: PACLITAXEL
     Indication: KAPOSI^S SARCOMA
     Dosage: 135 MG/M 2 EVERY THREE WEEKS FOR A TOTAL OF SIX CYCLES
     Route: 065
     Dates: start: 2016
  11. DEXAMETHASONE. [Suspect]
     Active Substance: DEXAMETHASONE
     Indication: ANAPHYLAXIS PROPHYLAXIS
  12. COTRIMOXAZOLE [Suspect]
     Active Substance: SULFAMETHOXAZOLE\TRIMETHOPRIM
     Indication: PROPHYLAXIS
     Dosage: GIVEN ON WEEKENDS ONLY
     Route: 065
  13. VINCRISTINE [Suspect]
     Active Substance: VINCRISTINE
     Indication: KAPOSI^S SARCOMA
     Dosage: 1.4 MILLIGRAM/SQ. METER, CYCLE SINGLE CYCLE; MAX 2 MG
     Route: 065
     Dates: start: 2016, end: 2016
  14. CHLORPHENIRAMINE                   /00072501/ [Suspect]
     Active Substance: CHLORPHENIRAMINE
     Indication: PREMEDICATION
     Dosage: GIVEN PRIOR TO EACH PACLITAXEL CYCLE
     Route: 065
     Dates: start: 2016

REACTIONS (11)
  - Oral candidiasis [Recovered/Resolved]
  - Abdominal pain [Recovered/Resolved]
  - Immune reconstitution inflammatory syndrome associated Kaposi^s sarcoma [Recovered/Resolved]
  - Maternal exposure during pregnancy [Recovered/Resolved]
  - Obstructive airways disorder [Recovered/Resolved]
  - Dyspnoea [Recovered/Resolved]
  - Dysphagia [Recovered/Resolved]
  - Haematemesis [Recovered/Resolved]
  - Exposure via breast milk [Unknown]
  - Haematochezia [Recovered/Resolved]
  - Lymphadenopathy [Recovered/Resolved]

NARRATIVE: CASE EVENT DATE: 2016
